FAERS Safety Report 6517747-3 (Version None)
Quarter: 2009Q4

REPORT INFORMATION
  Report Type: 
  Country: None (occurrence: None)
  Receive Date: 20091224
  Receipt Date: 20091217
  Transmission Date: 20100525
  Serious: Yes (Other)
  Sender: FDA-Public Use
  Company Number: GB-ASTRAZENECA-2009SE26555

PATIENT
  Age: 73 Year
  Sex: Male

DRUGS (10)
  1. ZOLADEX [Suspect]
     Indication: PROSTATE CANCER
     Route: 058
  2. METFORMIN HCL [Concomitant]
     Route: 048
  3. LANSOPRAZOLE [Concomitant]
     Route: 048
  4. SIMVASTATIN [Concomitant]
     Route: 048
  5. DOXAZOSIN MESYLATE [Concomitant]
     Route: 048
  6. LOSARTAN [Concomitant]
     Route: 048
  7. BENDROFLUAZIDE [Concomitant]
     Route: 048
  8. AMLODIPINE [Concomitant]
     Route: 048
  9. ASPIRIN [Concomitant]
     Route: 048
  10. MOXONIDINE [Concomitant]
     Route: 048

REACTIONS (2)
  - DEVICE FAILURE [None]
  - MEDICATION ERROR [None]
